FAERS Safety Report 10915108 (Version 2)
Quarter: 2015Q2

REPORT INFORMATION
  Report Type: Spontaneous
  Country: DE (occurrence: DE)
  Receive Date: 20150315
  Receipt Date: 20150406
  Transmission Date: 20150821
  Serious: Yes (Life-Threatening, Hospitalization, Other)
  Sender: FDA-Public Use
  Company Number: US-ASTRAZENECA-2015SE23410

PATIENT
  Age: 2 Month
  Sex: Male
  Weight: 3.8 kg

DRUGS (6)
  1. SYNAGIS [Suspect]
     Active Substance: PALIVIZUMAB
     Indication: PREMATURE BABY
     Route: 030
     Dates: start: 20150224, end: 20150224
  2. SYNAGIS [Suspect]
     Active Substance: PALIVIZUMAB
     Indication: ANTIVIRAL PROPHYLAXIS
     Route: 030
     Dates: start: 201501, end: 201501
  3. VIGANTOLETTEN [Concomitant]
     Active Substance: CHOLECALCIFEROL
  4. FERRO-SANOL DUODENAL [Concomitant]
     Active Substance: FERROUS SULFATE\GLYCINE
  5. SYNAGIS [Suspect]
     Active Substance: PALIVIZUMAB
     Indication: PREMATURE BABY
     Route: 030
     Dates: start: 201501, end: 201501
  6. SYNAGIS [Suspect]
     Active Substance: PALIVIZUMAB
     Indication: ANTIVIRAL PROPHYLAXIS
     Route: 030
     Dates: start: 20150224, end: 20150224

REACTIONS (10)
  - Respiratory failure [Recovering/Resolving]
  - Sneezing [Unknown]
  - Pneumonia respiratory syncytial viral [Not Recovered/Not Resolved]
  - Cough [Unknown]
  - Oral candidiasis [Unknown]
  - Apnoea [Not Recovered/Not Resolved]
  - Granulocytopenia [Unknown]
  - Bradycardia [Unknown]
  - Respiratory syncytial virus test positive [Unknown]
  - Umbilical hernia [Not Recovered/Not Resolved]

NARRATIVE: CASE EVENT DATE: 201502
